FAERS Safety Report 7214903-6 (Version None)
Quarter: 2011Q1

REPORT INFORMATION
  Report Type: 
  Country: None (occurrence: None)
  Receive Date: 20110107
  Receipt Date: 20100615
  Transmission Date: 20110831
  Serious: No
  Sender: FDA-Public Use
  Company Number: A0857705A

PATIENT
  Age: 59 Year
  Sex: Female

DRUGS (4)
  1. SIMVASTATIN [Concomitant]
  2. LOVAZA [Suspect]
     Indication: GENERAL PHYSICAL HEALTH DETERIORATION
     Route: 048
  3. ASPIRIN [Concomitant]
  4. PREMARIN [Concomitant]

REACTIONS (1)
  - THERAPEUTIC RESPONSE UNEXPECTED [None]
